FAERS Safety Report 21932156 (Version 5)
Quarter: 2023Q1

REPORT INFORMATION
  Report Type: Report from Study
  Country: US (occurrence: US)
  Receive Date: 20230131
  Receipt Date: 20230316
  Transmission Date: 20230417
  Serious: No
  Sender: FDA-Public Use
  Company Number: US-HORIZON THERAPEUTICS-HZN-2023-000014

PATIENT

DRUGS (3)
  1. TEPEZZA [Suspect]
     Active Substance: TEPROTUMUMAB-TRBW
     Indication: Endocrine ophthalmopathy
     Dosage: 1ST INFUSION UNK, EVERY 3 WEEKS
     Route: 042
     Dates: start: 20221227
  2. TEPEZZA [Suspect]
     Active Substance: TEPROTUMUMAB-TRBW
     Dosage: 2ND INFUSION UNK, EVERY 3 WEEKS
     Route: 042
     Dates: start: 20230117
  3. TEPEZZA [Suspect]
     Active Substance: TEPROTUMUMAB-TRBW
     Dosage: 3RD INFUSION UNK, EVERY 3 WEEKS
     Route: 042
     Dates: start: 20230208

REACTIONS (6)
  - Diarrhoea [Not Recovered/Not Resolved]
  - Haematochezia [Unknown]
  - Abdominal discomfort [Unknown]
  - Weight decreased [Unknown]
  - Headache [Recovering/Resolving]
  - Epistaxis [Unknown]

NARRATIVE: CASE EVENT DATE: 20230101
